FAERS Safety Report 17190909 (Version 1)
Quarter: 2019Q4

REPORT INFORMATION
  Report Type: Spontaneous
  Country: CA (occurrence: CA)
  Receive Date: 20191223
  Receipt Date: 20191223
  Transmission Date: 20200122
  Serious: Yes (Hospitalization, Other)
  Sender: FDA-Public Use
  Company Number: CA-PFIZER INC-2019549060

PATIENT
  Age: 66 Year
  Sex: Female

DRUGS (5)
  1. CBD OIL [Interacting]
     Active Substance: CANNABIDIOL\HERBALS
     Indication: ANXIETY
     Dosage: 1 DF, 2X/DAY
  2. CANNTRUST 1:1 DROPS (CANNABIDOL/DRONABINOL) [Interacting]
     Active Substance: CANNABIDIOL\.DELTA.8-TETRAHYDROCANNABINOL
     Indication: ANXIETY
     Dosage: 0.4 ML, 1X/DAY
  3. ATIVAN [Suspect]
     Active Substance: LORAZEPAM
     Dosage: UNK
  4. ZOPICLONE [Interacting]
     Active Substance: ZOPICLONE
     Dosage: UNK
  5. CIPRALEX [Concomitant]
     Active Substance: ESCITALOPRAM OXALATE
     Dosage: UNK

REACTIONS (9)
  - Cognitive disorder [Unknown]
  - Fall [Unknown]
  - Drug interaction [Unknown]
  - Nausea [Unknown]
  - Drug ineffective [Unknown]
  - Face injury [Unknown]
  - Memory impairment [Unknown]
  - Concussion [Unknown]
  - Hallucination [Unknown]
